FAERS Safety Report 21399657 (Version 2)
Quarter: 2022Q4

REPORT INFORMATION
  Report Type: Report from Study
  Country: US (occurrence: US)
  Receive Date: 20221001
  Receipt Date: 20221122
  Transmission Date: 20230113
  Serious: Yes (Other)
  Sender: FDA-Public Use
  Company Number: US-ABBVIE-4134276

PATIENT
  Age: 65 Year
  Sex: Female

DRUGS (10)
  1. HUMIRA [Suspect]
     Active Substance: ADALIMUMAB
     Indication: Psoriasis
     Dosage: FORM STRENGTH 40 MILLIGRAM?AROUND -JUL-2022 OR -AUG-2022
     Route: 058
     Dates: end: 2022
  2. HUMIRA [Suspect]
     Active Substance: ADALIMUMAB
     Indication: Psoriatic arthropathy
     Dosage: FORM STRENGTH 40 MILLIGRAM
     Route: 058
     Dates: end: 202207
  3. HUMIRA [Suspect]
     Active Substance: ADALIMUMAB
     Dosage: FORM STRENGTH 40 MILLIGRAM
     Route: 058
     Dates: start: 202209
  4. LOSARTAN [Concomitant]
     Active Substance: LOSARTAN
     Indication: Blood cholesterol increased
  5. PFIZER-BIONTECH COVID-19 VACCINE [Concomitant]
     Active Substance: TOZINAMERAN
     Indication: COVID-19 immunisation
     Dosage: TIME INTERVAL: TOTAL: FREQUENCY: ONE IN ONCE.
     Route: 030
  6. METFORMIN [Concomitant]
     Active Substance: METFORMIN HYDROCHLORIDE
     Indication: Diabetes mellitus
  7. ZETIA [Concomitant]
     Active Substance: EZETIMIBE
     Indication: Blood cholesterol
  8. CELEBREX [Concomitant]
     Active Substance: CELECOXIB
     Indication: Pain
  9. HYDROCHLOROTHIAZIDE [Concomitant]
     Active Substance: HYDROCHLOROTHIAZIDE
     Indication: Hypertension
  10. FENOFIBRATE [Concomitant]
     Active Substance: FENOFIBRATE
     Indication: Blood triglycerides increased

REACTIONS (5)
  - Arthritis [Unknown]
  - Meniscus injury [Recovering/Resolving]
  - Arthritis infective [Recovered/Resolved]
  - Limb mass [Recovered/Resolved]
  - Cellulitis [Unknown]

NARRATIVE: CASE EVENT DATE: 20220601
